FAERS Safety Report 7931510-8 (Version None)
Quarter: 2011Q4

REPORT INFORMATION
  Report Type: 
  Country: None (occurrence: None)
  Receive Date: 20111121
  Receipt Date: 20111121
  Transmission Date: 20120403
  Serious: Yes (Other)
  Sender: FDA-Public Use
  Company Number: None

PATIENT
  Age: 2 Year
  Sex: Female
  Weight: 11.793 kg

DRUGS (1)
  1. TOBRAMYCIN [Suspect]
     Indication: CONJUNCTIVITIS INFECTIVE
     Dosage: 2 DROPS IN THE EYE
     Route: 047
     Dates: start: 20111115, end: 20111117

REACTIONS (1)
  - URTICARIA [None]
